FAERS Safety Report 17580237 (Version 1)
Quarter: 2020Q1

REPORT INFORMATION
  Report Type: Spontaneous
  Country: FR (occurrence: FR)
  Receive Date: 20200325
  Receipt Date: 20200325
  Transmission Date: 20200409
  Serious: Yes (Disabling)
  Sender: FDA-Public Use
  Company Number: FR-PFIZER INC-2020125241

PATIENT
  Sex: Male
  Weight: 65 kg

DRUGS (10)
  1. ANDROCUR [Suspect]
     Active Substance: CYPROTERONE ACETATE
     Indication: COMPULSIVE SEXUAL BEHAVIOUR
     Dosage: 100 MG, 1X/DAY
     Route: 048
     Dates: end: 20161004
  2. VALIUM [Suspect]
     Active Substance: DIAZEPAM
     Dosage: 6 MG, 1X/DAY
     Route: 048
  3. XEROQUEL [Suspect]
     Active Substance: QUETIAPINE FUMARATE
     Dosage: 2 DF, 1X/DAY
     Route: 048
  4. MACROGOL STEARATE [Suspect]
     Active Substance: POLYETHYLENE GLYCOLS
     Indication: CONSTIPATION
     Dosage: 2 DF, 1X/DAY
     Route: 048
  5. SULFARLEM S [Suspect]
     Active Substance: ANETHOLTRITHION
     Dosage: 75 MG, 1X/DAY
     Route: 048
  6. LYRICA [Suspect]
     Active Substance: PREGABALIN
     Dosage: 300 MG, 1X/DAY
     Route: 048
  7. LEPTICUR [Suspect]
     Active Substance: TROPATEPINE HYDROCHLORIDE
     Dosage: 20 MG, 1X/DAY
     Route: 048
  8. LOXAPAC [LOXAPINE SUCCINATE] [Suspect]
     Active Substance: LOXAPINE SUCCINATE
     Dosage: 150 MG, 1X/DAY
     Route: 048
  9. CITALOPRAM [Suspect]
     Active Substance: CITALOPRAM HYDROBROMIDE
     Dosage: 10 MG, 1X/DAY
     Route: 048
  10. DEPAMIDE [Suspect]
     Active Substance: VALPROMIDE
     Dosage: 900 MG, 1X/DAY
     Route: 048

REACTIONS (2)
  - Meningioma [Not Recovered/Not Resolved]
  - Blindness [Not Recovered/Not Resolved]

NARRATIVE: CASE EVENT DATE: 201608
